FAERS Safety Report 23119456 (Version 1)
Quarter: 2023Q4

REPORT INFORMATION
  Report Type: Spontaneous
  Country: GB (occurrence: GB)
  Receive Date: 20231029
  Receipt Date: 20231029
  Transmission Date: 20240109
  Serious: Yes (Other)
  Sender: FDA-Public Use
  Company Number: None

PATIENT
  Age: 88 Year

DRUGS (12)
  1. BISOPROLOL [Suspect]
     Active Substance: BISOPROLOL\BISOPROLOL FUMARATE
     Indication: Product used for unknown indication
     Dosage: 7.5 MILLIGRAM DAILY; 5MG OM + 2.5MG PM, BISOPROLOL 2.5MG TABLETS + BISOPROLOL 5MG TABLETS
     Route: 065
  2. ONEALFA [Concomitant]
     Active Substance: ALFACALCIDOL
     Indication: Product used for unknown indication
     Dosage: TAKE ONE EVERY OTHER DAY AND TWO ALTERNATE DAYS
  3. ARANESP [Concomitant]
     Active Substance: DARBEPOETIN ALFA
     Indication: Product used for unknown indication
     Dosage: NEPH CLINIC LETTER 09/02/23 STATES SWITCH FROM EVERY 3/52 TO EVERY 4/52)- LAST HAD 08/03/23, UNIT DO
  4. LANSOPRAZOLE [Concomitant]
     Active Substance: LANSOPRAZOLE
     Indication: Product used for unknown indication
     Dosage: 15 MILLIGRAM DAILY; EACH MORNING, UNIT DOSE : 15 MG
  5. LOSARTAN [Concomitant]
     Active Substance: LOSARTAN
     Indication: Product used for unknown indication
     Dosage: 100 MILLIGRAM DAILY; INCREASED FROM 75MG OM 14/03/23, UNIT DOSE : 100 MG, OD
  6. ACENOCOUMAROL [Concomitant]
     Active Substance: ACENOCOUMAROL
     Indication: Atrial fibrillation
     Dosage: 2 MILLIGRAM DAILY; TAKE AS DIRECTED IN YOUR YELLOW INR BOOK, UNIT DOSE : 2 MG, OD
  7. SITAGLIPTIN [Concomitant]
     Active Substance: SITAGLIPTIN
     Indication: Product used for unknown indication
     Dosage: 250 MILLIGRAM DAILY; UNIT DOSE : 250 MG, OD
     Route: 048
  8. ALLOPURINOL [Concomitant]
     Active Substance: ALLOPURINOL
     Indication: Product used for unknown indication
     Dosage: 100 MILLIGRAM DAILY; UNIT DOSE : 100 MG, OD
  9. SIMVASTATIN [Concomitant]
     Active Substance: SIMVASTATIN
     Indication: Product used for unknown indication
     Dosage: 10 MILLIGRAM DAILY; IN EVENING, UNIT DOSE : 10 MG
  10. FOLIC ACID [Concomitant]
     Active Substance: FOLIC ACID
     Indication: Product used for unknown indication
     Dosage: 5 MILLIGRAM DAILY; UNIT DOSE : 5 MG, OD
  11. DIGOXIN [Concomitant]
     Active Substance: DIGOXIN
     Indication: Product used for unknown indication
     Dosage: 62.5 MICROGRAM DAILY; EACH MORNING, UNIT DOSE : 62.5 MCG
  12. TAMSULOSIN [Concomitant]
     Active Substance: TAMSULOSIN
     Indication: Product used for unknown indication
     Dosage: 400 MICROGRAM DAILY; UNIT DOSE : 400  MCG, OD

REACTIONS (1)
  - Peripheral ischaemia [Unknown]
